FAERS Safety Report 5484815-7 (Version None)
Quarter: 2007Q4

REPORT INFORMATION
  Report Type: 
  Country: None (occurrence: None)
  Receive Date: 20071012
  Receipt Date: 20071001
  Transmission Date: 20080405
  Serious: Yes (Hospitalization, Other)
  Sender: FDA-Public Use
  Company Number: US-PFIZER INC-2007082770

PATIENT
  Sex: Female
  Weight: 68.181 kg

DRUGS (15)
  1. CHANTIX [Suspect]
     Indication: SMOKING CESSATION THERAPY
  2. CHANTIX [Suspect]
  3. CHANTIX [Suspect]
  4. COUMADIN [Concomitant]
  5. LYRICA [Concomitant]
  6. LIPITOR [Concomitant]
  7. CYMBALTA [Concomitant]
  8. PREMARIN [Concomitant]
  9. DIGITEK [Concomitant]
  10. CARTIA XT [Concomitant]
  11. CARDIZEM [Concomitant]
  12. NEXIUM [Concomitant]
  13. HYDROCODONE [Concomitant]
  14. XANAX [Concomitant]
  15. LASIX [Concomitant]

REACTIONS (4)
  - CONTUSION [None]
  - FRACTURE [None]
  - RIB FRACTURE [None]
  - STRESS [None]
